FAERS Safety Report 7285499-8 (Version None)
Quarter: 2011Q1

REPORT INFORMATION
  Report Type: 
  Country: None (occurrence: None)
  Receive Date: 20110210
  Receipt Date: 20110204
  Transmission Date: 20110831
  Serious: Yes (Death, Hospitalization, Other)
  Sender: FDA-Public Use
  Company Number: FR-PFIZER INC-2011025667

PATIENT
  Age: 79 Year
  Sex: Female

DRUGS (1)
  1. TAHOR [Suspect]
     Indication: HYPERCHOLESTEROLAEMIA
     Dosage: 10 MG, 1X/DAY
     Route: 048
     Dates: start: 20100915, end: 20110101

REACTIONS (7)
  - ENCEPHALOPATHY [None]
  - JAUNDICE [None]
  - COMA [None]
  - ASCITES [None]
  - HEPATIC FAILURE [None]
  - GENERAL PHYSICAL HEALTH DETERIORATION [None]
  - ASTHENIA [None]
